FAERS Safety Report 23411450 (Version 3)
Quarter: 2024Q1

REPORT INFORMATION
  Report Type: Spontaneous
  Country: DE (occurrence: DE)
  Receive Date: 20240117
  Receipt Date: 20240205
  Transmission Date: 20240409
  Serious: Yes (Hospitalization, Other)
  Sender: FDA-Public Use
  Company Number: DE-BAXTER-2023BAX039368

PATIENT
  Age: 5 Year
  Sex: Male
  Weight: 19.9 kg

DRUGS (13)
  1. METHOTREXATE [Suspect]
     Active Substance: METHOTREXATE
     Indication: B-cell prolymphocytic leukaemia
     Dosage: 12 MILLIGRAM, ONCE (FIRST REGIMEN)
     Route: 037
     Dates: start: 20231205, end: 20231205
  2. METHOTREXATE [Suspect]
     Active Substance: METHOTREXATE
     Dosage: 810 MILLIGRAM (INFUSION OVER 36 HOURS, SECOND REGIMEN)
     Route: 065
     Dates: start: 20231206
  3. CYTARABINE [Suspect]
     Active Substance: CYTARABINE
     Indication: B-cell prolymphocytic leukaemia
     Dosage: 1620 MILLIGRAM, BID (TWICE DAILY)
     Route: 042
     Dates: start: 20231210
  4. CYTARABINE [Suspect]
     Active Substance: CYTARABINE
     Indication: B-cell prolymphocytic leukaemia
     Dosage: 30 MILLIGRAM, ONCE, FIRST REGIMEN,
     Route: 037
     Dates: start: 20231205
  5. PEGASPARGASE [Suspect]
     Active Substance: PEGASPARGASE
     Indication: B-cell prolymphocytic leukaemia
     Dosage: 810 INTERNATIONAL UNIT, ONCE
     Route: 042
     Dates: start: 20231211
  6. DEXAMETHASONE [Suspect]
     Active Substance: DEXAMETHASONE
     Indication: B-cell prolymphocytic leukaemia
     Dosage: 2 MILLIGRAM, BID (2 MG, TWICE DAILY)
     Route: 048
     Dates: start: 20231205
  7. CYCLOPHOSPHAMIDE [Suspect]
     Active Substance: CYCLOPHOSPHAMIDE
     Indication: B-cell prolymphocytic leukaemia
     Dosage: 162 MILLIGRAM (5 DOSES ON DAY 2-DAY 4 OF PROTOCOL)
     Route: 042
     Dates: start: 20231207
  8. VINCRISTINE SULFATE [Suspect]
     Active Substance: VINCRISTINE SULFATE
     Indication: B-cell prolymphocytic leukaemia
     Dosage: 1.22 ON DAY 1 AND DAY 6
     Route: 065
     Dates: start: 20231206
  9. PREDNISOLONE [Suspect]
     Active Substance: PREDNISOLONE
     Indication: B-cell prolymphocytic leukaemia
     Dosage: 10 MILLIGRAM, ONCE
     Route: 037
     Dates: start: 20231205, end: 20231205
  10. COTRIMOXAZOLE [Concomitant]
     Active Substance: SULFAMETHOXAZOLE\TRIMETHOPRIM
     Indication: Immunosuppressant drug therapy
     Dosage: UNK
     Route: 048
     Dates: start: 202311
  11. AMBISOME [Concomitant]
     Active Substance: AMPHOTERICIN B
     Indication: Immunosuppressant drug therapy
     Dosage: UNK, ONGOING
     Route: 065
     Dates: start: 20231102
  12. Novalgin [Concomitant]
     Dosage: UNK, ONGOING
     Route: 048
     Dates: start: 20231208
  13. INOTUZUMAB OZOGAMICIN [Concomitant]
     Active Substance: INOTUZUMAB OZOGAMICIN
     Indication: B-cell prolymphocytic leukaemia
     Dosage: 0.41 MILLIGRAM, ONCE
     Route: 065
     Dates: start: 20231107

REACTIONS (3)
  - Mucosal inflammation [Recovered/Resolved]
  - Myelosuppression [Unknown]
  - Pyrexia [Recovered/Resolved]

NARRATIVE: CASE EVENT DATE: 20231214
